FAERS Safety Report 9135279 (Version 2)
Quarter: 2013Q4

REPORT INFORMATION
  Report Type: Spontaneous
  Country: DE (occurrence: CA)
  Receive Date: 20130304
  Receipt Date: 20131008
  Transmission Date: 20140711
  Serious: Yes (Hospitalization)
  Sender: FDA-Public Use
  Company Number: CA-FRI-1000043057

PATIENT
  Age: 57 Year
  Sex: Male

DRUGS (1)
  1. ROFLUMILAST [Suspect]
     Dosage: 500 MCG
     Route: 048
     Dates: start: 201203

REACTIONS (4)
  - Clostridial infection [Recovered/Resolved]
  - Epistaxis [Recovering/Resolving]
  - Headache [Recovering/Resolving]
  - Sinusitis [Recovering/Resolving]
